FAERS Safety Report 17605122 (Version 3)
Quarter: 2021Q2

REPORT INFORMATION
  Report Type: Spontaneous
  Country: FR (occurrence: FR)
  Receive Date: 20200331
  Receipt Date: 20210405
  Transmission Date: 20210716
  Serious: Yes (Death, Hospitalization)
  Sender: FDA-Public Use
  Company Number: FR-ACCORD-177542

PATIENT
  Age: 55 Year
  Sex: Female
  Weight: 72 kg

DRUGS (12)
  1. SETOFILM [Suspect]
     Active Substance: ONDANSETRON
     Indication: PRODUCT USED FOR UNKNOWN INDICATION
     Dosage: STRENGTH 8 MG
     Route: 048
     Dates: start: 20190710
  2. OXALIPLATIN. [Suspect]
     Active Substance: OXALIPLATIN
     Indication: OESOPHAGEAL ADENOCARCINOMA
     Route: 041
     Dates: start: 20190710, end: 20190724
  3. FOLINIC ACID [Suspect]
     Active Substance: LEUCOVORIN
     Indication: PROPHYLAXIS
     Dosage: INCONNUE
     Route: 041
     Dates: start: 20190710, end: 20190724
  4. REFRESH [Concomitant]
     Active Substance: UNSPECIFIED INGREDIENT
     Dosage: SINGLE?DOSE CONTAINER
     Route: 047
  5. TELMISARTAN. [Suspect]
     Active Substance: TELMISARTAN
     Route: 048
  6. TEGRETOL [Suspect]
     Active Substance: CARBAMAZEPINE
     Route: 048
  7. EMEND [Suspect]
     Active Substance: APREPITANT
     Indication: PROPHYLAXIS OF NAUSEA AND VOMITING
     Dosage: STRENGTH 125 MG
     Route: 048
     Dates: start: 20190710, end: 20190724
  8. LEVOTHYROX [Suspect]
     Active Substance: LEVOTHYROXINE
     Dosage: STRENGTH 150 MICROGRAMS, SCORED TABLET
     Route: 048
  9. CORTANCYL [Suspect]
     Active Substance: PREDNISONE
     Dosage: STRENGTH 20 MG
     Route: 048
     Dates: start: 20190710
  10. FLUOROURACIL. [Suspect]
     Active Substance: FLUOROURACIL
     Indication: OESOPHAGEAL ADENOCARCINOMA
     Route: 041
     Dates: start: 20190710, end: 20190724
  11. AMLODIPINE [Suspect]
     Active Substance: AMLODIPINE BESYLATE
     Indication: PRODUCT USED FOR UNKNOWN INDICATION
     Route: 048
  12. TRAVOPROST. [Concomitant]
     Active Substance: TRAVOPROST
     Route: 047

REACTIONS (2)
  - Off label use [Unknown]
  - Subacute cutaneous lupus erythematosus [Recovering/Resolving]

NARRATIVE: CASE EVENT DATE: 20190720
